FAERS Safety Report 7113301-3 (Version None)
Quarter: 2010Q4

REPORT INFORMATION
  Report Type: 
  Country: None (occurrence: None)
  Receive Date: 20101119
  Receipt Date: 20100802
  Transmission Date: 20110411
  Serious: No
  Sender: FDA-Public Use
  Company Number: A0873457A

PATIENT
  Age: 46 Year
  Sex: Male

DRUGS (3)
  1. WELLBUTRIN [Suspect]
     Indication: DEPRESSION
     Route: 048
  2. LAMICTAL [Concomitant]
  3. PAXIL [Concomitant]

REACTIONS (2)
  - PALPITATIONS [None]
  - PSYCHOMOTOR HYPERACTIVITY [None]
